FAERS Safety Report 13777310 (Version 2)
Quarter: 2017Q3

REPORT INFORMATION
  Report Type: Report from Study
  Country: IT (occurrence: IT)
  Receive Date: 20170720
  Receipt Date: 20170814
  Transmission Date: 20171127
  Serious: Yes (Hospitalization)
  Sender: FDA-Public Use
  Company Number: IT-009507513-1707ITA007613

PATIENT
  Age: 59 Year
  Sex: Male

DRUGS (6)
  1. CARDIOASPIRIN [Concomitant]
     Active Substance: ASPIRIN
  2. LUVION (CANRENONE) [Concomitant]
     Active Substance: CANRENONE
  3. METFORMIN [Suspect]
     Active Substance: METFORMIN HYDROCHLORIDE
     Indication: TYPE 2 DIABETES MELLITUS
     Dosage: 2 DOSE UNIT, UNK
     Route: 048
     Dates: start: 20170101, end: 20170315
  4. ZYPREXA [Concomitant]
     Active Substance: OLANZAPINE
     Indication: PSYCHOTIC DISORDER
  5. JANUMET [Suspect]
     Active Substance: METFORMIN HYDROCHLORIDE\SITAGLIPTIN PHOSPHATE
     Indication: TYPE 2 DIABETES MELLITUS
     Dosage: 1 DOSE UNIT (50 MG/1000 MG), DAILY
     Route: 048
     Dates: start: 20170101, end: 20170315
  6. TAVOR (LORAZEPAM) [Concomitant]
     Active Substance: LORAZEPAM

REACTIONS (4)
  - Acetonaemia [Unknown]
  - Bradyphrenia [Unknown]
  - Diabetic metabolic decompensation [Unknown]
  - Balance disorder [Unknown]

NARRATIVE: CASE EVENT DATE: 20170315
